FAERS Safety Report 15140087 (Version 2)
Quarter: 2018Q3

REPORT INFORMATION
  Report Type: Spontaneous
  Country: ES (occurrence: ES)
  Receive Date: 20180713
  Receipt Date: 20180816
  Transmission Date: 20181010
  Serious: Yes (Hospitalization)
  Sender: FDA-Public Use
  Company Number: ES-ROCHE-2154609

PATIENT
  Age: 90 Year
  Sex: Male

DRUGS (3)
  1. OMALIZUMAB. [Suspect]
     Active Substance: OMALIZUMAB
     Indication: URTICARIA CHRONIC
     Dosage: CYCLIC
     Route: 058
     Dates: start: 20170707
  2. OMALIZUMAB. [Suspect]
     Active Substance: OMALIZUMAB
     Dosage: CYCLIC
     Route: 058
     Dates: start: 20170801
  3. CORTISONE [Concomitant]
     Active Substance: CORTISONE\HYDROCORTISONE
     Indication: URTICARIA CHRONIC
     Route: 065

REACTIONS (2)
  - Hypoproteinaemia [Recovering/Resolving]
  - Oedema peripheral [Recovering/Resolving]

NARRATIVE: CASE EVENT DATE: 20170801
